FAERS Safety Report 8251424-6 (Version None)
Quarter: 2012Q1

REPORT INFORMATION
  Report Type: 
  Country: None (occurrence: None)
  Receive Date: 20120321
  Receipt Date: 20110610
  Transmission Date: 20120608
  Serious: No
  Sender: FDA-Public Use
  Company Number: PHHY2011US52654

PATIENT
  Age: 44 Year
  Sex: Female

DRUGS (1)
  1. ILARIS [Suspect]
     Dosage: 150 MG, EVERY 8 WEEKS, SUBCUTANEOUS
     Route: 058
     Dates: start: 20101201, end: 20110610

REACTIONS (1)
  - DRUG INEFFECTIVE [None]
